FAERS Safety Report 7391292-8 (Version None)
Quarter: 2011Q2

REPORT INFORMATION
  Report Type: 
  Country: None (occurrence: None)
  Receive Date: 20110404
  Receipt Date: 20100805
  Transmission Date: 20111010
  Serious: No
  Sender: FDA-Public Use
  Company Number: US-PFIZER INC-2010099072

PATIENT
  Sex: Male
  Weight: 103 kg

DRUGS (2)
  1. METHADONE [Concomitant]
     Indication: PAIN
     Dosage: 10 MG, 1X/DAY AT THE BED TIME
  2. SERTRALINE HYDROCHLORIDE [Suspect]
     Indication: DEPRESSION
     Dosage: 100 MG, 1X/DAY
     Route: 048
     Dates: start: 20100131, end: 20100701

REACTIONS (1)
  - DRUG INEFFECTIVE [None]
